FAERS Safety Report 6584780-5 (Version None)
Quarter: 2010Q1

REPORT INFORMATION
  Report Type: 
  Country: None (occurrence: None)
  Receive Date: 20100217
  Receipt Date: 20100212
  Transmission Date: 20100710
  Serious: Yes (Death)
  Sender: FDA-Public Use
  Company Number: PHHY2010JP02314

PATIENT
  Sex: Female

DRUGS (11)
  1. NEORAL [Suspect]
     Indication: APLASTIC ANAEMIA
     Dosage: 250 MG DAILY
     Route: 048
     Dates: start: 20070601
  2. NEORAL [Suspect]
     Dosage: 50 MG DAILY
     Route: 048
     Dates: start: 20070613, end: 20090623
  3. STEROIDS NOS [Concomitant]
  4. ANTI-THYMOCYTE GLOBULIN NOS [Concomitant]
     Indication: APLASTIC ANAEMIA
     Dosage: UNK
     Dates: start: 20070601
  5. METHYLPREDNISOLONE [Concomitant]
     Indication: APLASTIC ANAEMIA
     Dosage: UNK
     Dates: start: 20070601
  6. OMEPRAL [Concomitant]
     Indication: PROPHYLAXIS
     Dosage: 20 MG
     Route: 048
     Dates: start: 20070613, end: 20090623
  7. CERCINE [Concomitant]
     Indication: ANXIETY DISORDER
     Dosage: 2 MG
     Route: 048
     Dates: start: 20070613, end: 20090623
  8. LOXONIN [Concomitant]
     Indication: BACK PAIN
     Dosage: 120 MG
     Route: 048
     Dates: start: 20070613, end: 20090623
  9. PRIMOBOLAN [Concomitant]
     Indication: APLASTIC ANAEMIA
     Dosage: 10 MG
     Route: 048
     Dates: start: 20070613, end: 20090623
  10. PROMAC [Concomitant]
     Indication: DYSGEUSIA
     Dosage: 150 MG
     Route: 048
     Dates: start: 20070613, end: 20090623
  11. FOSAMAC [Concomitant]
     Indication: OSTEOPOROSIS
     Dosage: 5 MG
     Route: 048
     Dates: start: 20070613, end: 20090623

REACTIONS (6)
  - ACUTE RESPIRATORY DISTRESS SYNDROME [None]
  - DISSEMINATED TUBERCULOSIS [None]
  - DYSPNOEA [None]
  - GRANULOMA [None]
  - PULMONARY TUBERCULOSIS [None]
  - PYREXIA [None]
